FAERS Safety Report 5618604-7 (Version None)
Quarter: 2008Q1

REPORT INFORMATION
  Report Type: 
  Country: None (occurrence: None)
  Receive Date: 20080205
  Receipt Date: 20080205
  Transmission Date: 20080703
  Serious: No
  Sender: FDA-Public Use
  Company Number: None

PATIENT
  Age: 68 Year
  Sex: Male

DRUGS (2)
  1. ZOCOR [Suspect]
     Dosage: 20MG 1 DAILY
     Dates: start: 20050201, end: 20070901
  2. SIMVASTATIN [Suspect]

REACTIONS (6)
  - CATARACT [None]
  - DISEASE PROGRESSION [None]
  - DRY SKIN [None]
  - ERECTILE DYSFUNCTION [None]
  - LOSS OF LIBIDO [None]
  - MUSCLE SPASMS [None]
